FAERS Safety Report 18108904 (Version 1)
Quarter: 2020Q3

REPORT INFORMATION
  Report Type: Spontaneous
  Country: US (occurrence: US)
  Receive Date: 20200804
  Receipt Date: 20200804
  Transmission Date: 20201103
  Serious: No
  Sender: FDA-Public Use
  Company Number: US-PFIZER INC-2020293605

PATIENT
  Age: 57 Year
  Sex: Female

DRUGS (1)
  1. IBRANCE [Suspect]
     Active Substance: PALBOCICLIB
     Indication: BREAST CANCER FEMALE
     Dosage: 125 MG, CYCLIC (QD X21D Q28D CYCLE)
     Dates: start: 20180123, end: 202007

REACTIONS (2)
  - Pyrexia [Unknown]
  - Dermatitis contact [Unknown]

NARRATIVE: CASE EVENT DATE: 202007
